FAERS Safety Report 18992497 (Version 1)
Quarter: 2021Q1

REPORT INFORMATION
  Report Type: Spontaneous
  Country: US (occurrence: US)
  Receive Date: 20210310
  Receipt Date: 20210310
  Transmission Date: 20210420
  Serious: Yes (Hospitalization, Other)
  Sender: FDA-Public Use
  Company Number: US-ORGANON-1301USA010126

PATIENT
  Sex: Female
  Weight: 61.68 kg

DRUGS (3)
  1. ALENDRONATE SODIUM. [Suspect]
     Active Substance: ALENDRONATE SODIUM
     Indication: OSTEOPOROSIS
     Dosage: 70 MG, UNK
     Route: 048
     Dates: start: 200803, end: 200912
  2. FOSAMAX [Suspect]
     Active Substance: ALENDRONATE SODIUM
     Dosage: 35 MG, QW
     Route: 048
     Dates: end: 201001
  3. FOSAMAX [Suspect]
     Active Substance: ALENDRONATE SODIUM
     Indication: OSTEOPOROSIS
     Dosage: 70 MG, QW
     Route: 048
     Dates: start: 200211, end: 200803

REACTIONS (49)
  - Hip surgery [Unknown]
  - Pelvic fracture [Unknown]
  - Pelvic fracture [Unknown]
  - Tooth extraction [Unknown]
  - Adenotonsillectomy [Unknown]
  - Migraine [Unknown]
  - Dizziness [Unknown]
  - Headache [Unknown]
  - Polyp [Recovered/Resolved]
  - Hiatus hernia [Recovering/Resolving]
  - Giant cell arteritis [Unknown]
  - Femur fracture [Unknown]
  - Femur fracture [Recovering/Resolving]
  - Atrial fibrillation [Unknown]
  - Rectal polyp [Unknown]
  - Gastrooesophageal reflux disease [Unknown]
  - Pyrexia [Unknown]
  - Osteopenia [Unknown]
  - Ethmoid sinus surgery [Unknown]
  - Blood pressure decreased [Unknown]
  - Dizziness [Unknown]
  - Stress urinary incontinence [Unknown]
  - Back pain [Unknown]
  - Urinary tract infection [Unknown]
  - Rib fracture [Unknown]
  - Intramedullary rod insertion [Unknown]
  - Oral surgery [Unknown]
  - Chronic sinusitis [Not Recovered/Not Resolved]
  - Osteoporosis [Unknown]
  - Pain [Unknown]
  - Gastrointestinal haemorrhage [Unknown]
  - Oedema [Unknown]
  - Chondrocalcinosis [Unknown]
  - Accident [Unknown]
  - Cervix disorder [Unknown]
  - Nocturia [Unknown]
  - Osteoarthritis [Unknown]
  - Rhinitis allergic [Unknown]
  - Pelvic fracture [Unknown]
  - Pelvic fracture [Unknown]
  - Pelvic fracture [Unknown]
  - Dyspnoea exertional [Unknown]
  - Sinus antrostomy [Unknown]
  - Oral infection [Unknown]
  - Osteoarthritis [Unknown]
  - Hyperaesthesia [Unknown]
  - Hypoaesthesia [Unknown]
  - Rhinorrhoea [Unknown]
  - Fall [Unknown]

NARRATIVE: CASE EVENT DATE: 20030212
